FAERS Safety Report 9663712 (Version 1)
Quarter: 2013Q4

REPORT INFORMATION
  Report Type: Spontaneous
  Country: CN (occurrence: CN)
  Receive Date: 20131101
  Receipt Date: 20131101
  Transmission Date: 20140711
  Serious: Yes (Hospitalization, Other)
  Sender: FDA-Public Use
  Company Number: PHHY2013CN123607

PATIENT
  Age: 59 Year
  Sex: Male
  Weight: 62 kg

DRUGS (1)
  1. SANDOSTATIN LAR [Suspect]
     Indication: ADENOCARCINOMA
     Dosage: 1 DF, QMO
     Route: 030
     Dates: start: 20120629, end: 20120629

REACTIONS (4)
  - Joint swelling [Recovering/Resolving]
  - Hypotension [Unknown]
  - C-reactive protein abnormal [Unknown]
  - White blood cell disorder [Unknown]
